FAERS Safety Report 8475088-1 (Version None)
Quarter: 2012Q2

REPORT INFORMATION
  Report Type: 
  Country: None (occurrence: None)
  Receive Date: 20120628
  Receipt Date: 20120622
  Transmission Date: 20120825
  Serious: Yes (Other)
  Sender: FDA-Public Use
  Company Number: US-BAYER-2011-017927

PATIENT
  Sex: Male
  Weight: 83 kg

DRUGS (60)
  1. OPTIMARK [Suspect]
     Indication: ANGIOGRAM
  2. MULTIHANCE [Suspect]
     Indication: NUCLEAR MAGNETIC RESONANCE IMAGING
  3. PEPCID [Concomitant]
  4. MECLIZINE [Concomitant]
  5. PREDNISONE TAB [Concomitant]
  6. DIOVAN [Concomitant]
  7. PLAVIX [Concomitant]
  8. NEXIUM [Concomitant]
  9. FLOMAX [Concomitant]
  10. WARFARIN SODIUM [Concomitant]
  11. MAGNEVIST [Suspect]
  12. COVERA-HS [Concomitant]
  13. NORVASC [Concomitant]
  14. NEPHROCAPS [VIT C,VIT H,B12,B9,B3,PANTOTHEN AC,B6,B2,B1 HCL] [Concomitant]
  15. COUMADIN [Concomitant]
  16. PROHANCE [Suspect]
     Indication: ANGIOGRAM
  17. EPOGEN [Concomitant]
  18. MONOPRIL [Concomitant]
  19. CYTOXAN [Concomitant]
  20. ACCUPRIL [Concomitant]
  21. ASPIRIN [Concomitant]
  22. SENSIPAR [Concomitant]
  23. NOVOLIN [INSULIN] [Concomitant]
  24. MAGNEVIST [Suspect]
     Indication: ANGIOGRAM
  25. MAGNEVIST [Suspect]
     Indication: NUCLEAR MAGNETIC RESONANCE IMAGING BRAIN
  26. MULTIHANCE [Suspect]
     Indication: ANGIOGRAM
  27. HYDRALAZINE HYDROCHLORIDE [Concomitant]
  28. ANCEF [Concomitant]
  29. ACETAMINOPHEN [Concomitant]
  30. KAYEXALATE [Concomitant]
  31. HUMULIN [INSULIN HUMAN INJECTION, ISOPHANE] [Concomitant]
  32. OPTIMARK [Suspect]
     Indication: NUCLEAR MAGNETIC RESONANCE IMAGING
  33. OMNISCAN [Suspect]
     Indication: NUCLEAR MAGNETIC RESONANCE IMAGING
  34. OMNISCAN [Suspect]
     Indication: ANGIOGRAM
  35. NORVASC [Concomitant]
  36. PHOSLO [Concomitant]
  37. CATAPRES [Concomitant]
  38. PREVACID [Concomitant]
  39. RENVELA [Concomitant]
  40. MAGNEVIST [Suspect]
     Indication: NUCLEAR MAGNETIC RESONANCE IMAGING
     Dosage: 20 ML, ONCE
     Route: 042
     Dates: start: 19980518, end: 19980518
  41. PROHANCE [Suspect]
     Indication: NUCLEAR MAGNETIC RESONANCE IMAGING
  42. LASIX [Concomitant]
  43. AMIODARONE HYDROCHLORIDE [Concomitant]
  44. ASCORBIC ACID [Concomitant]
  45. FISH OIL [Concomitant]
  46. SODIUM POLYSTYRENE SULFONATE [Concomitant]
  47. PROCRIT [Concomitant]
  48. ZAROXOLYN [Concomitant]
  49. DIURIL [Concomitant]
  50. DARVOCET [Concomitant]
  51. NEURONTIN [Concomitant]
  52. RENAGEL [Concomitant]
  53. CLONIDINE [Concomitant]
  54. LEVOTHYROXINE [Concomitant]
  55. DEMADEX [Concomitant]
  56. POTASSIUM CHLORIDE [Concomitant]
  57. VERAPAMIL [Concomitant]
  58. PERCOCET [Concomitant]
  59. LOPRESSOR [Concomitant]
  60. LIPITOR [Concomitant]

REACTIONS (15)
  - DRY SKIN [None]
  - SKIN TIGHTNESS [None]
  - PAIN [None]
  - PRURITUS [None]
  - JOINT RANGE OF MOTION DECREASED [None]
  - QUALITY OF LIFE DECREASED [None]
  - STASIS DERMATITIS [None]
  - NEPHROGENIC SYSTEMIC FIBROSIS [None]
  - RASH [None]
  - SKIN HYPERTROPHY [None]
  - MUSCULAR WEAKNESS [None]
  - MOBILITY DECREASED [None]
  - OEDEMA PERIPHERAL [None]
  - SKIN DISCOLOURATION [None]
  - ORTHOSTATIC HYPOTENSION [None]
